FAERS Safety Report 7512645-0 (Version None)
Quarter: 2011Q2

REPORT INFORMATION
  Report Type: 
  Country: None (occurrence: None)
  Receive Date: 20110525
  Receipt Date: 20110525
  Transmission Date: 20111010
  Serious: Yes (Death)
  Sender: FDA-Public Use
  Company Number: None

PATIENT
  Age: 83 Year
  Sex: Female

DRUGS (4)
  1. REVLIMID [Suspect]
     Indication: MULTIPLE MYELOMA
     Dosage: 25 MG DAILY X21D/28D ORALLY
     Route: 048
     Dates: start: 20100601, end: 20100901
  2. ATROPINE [Concomitant]
  3. LORAZEPAM [Concomitant]
  4. MORPHINE [Concomitant]

REACTIONS (5)
  - PRESYNCOPE [None]
  - CHILLS [None]
  - TREMOR [None]
  - HYPOTENSION [None]
  - FAECAL INCONTINENCE [None]
